FAERS Safety Report 9493028 (Version 1)
Quarter: 2013Q3

REPORT INFORMATION
  Report Type: Spontaneous
  Country: GB (occurrence: GB)
  Receive Date: 20130902
  Receipt Date: 20130902
  Transmission Date: 20140515
  Serious: Yes (Life-Threatening, Hospitalization)
  Sender: FDA-Public Use
  Company Number: GB-JNJFOC-20130815130

PATIENT
  Age: 58 Year
  Sex: Female

DRUGS (4)
  1. PARACETAMOL [Suspect]
     Route: 065
  2. PARACETAMOL [Suspect]
     Indication: PRODUCT USED FOR UNKNOWN INDICATION
     Route: 065
  3. PERSANTIN RETARD 150 [Suspect]
     Indication: PRODUCT USED FOR UNKNOWN INDICATION
     Route: 065
  4. FLUOXETINE [Concomitant]
     Indication: DEPRESSION
     Route: 065

REACTIONS (5)
  - Intestinal ischaemia [Recovered/Resolved]
  - Cardiac arrest [Recovered/Resolved]
  - Overdose [Recovered/Resolved]
  - Dysphonia [Recovered/Resolved]
  - Multi-organ failure [Recovered/Resolved]
